FAERS Safety Report 24872122 (Version 1)
Quarter: 2025Q1

REPORT INFORMATION
  Report Type: Spontaneous
  Country: US (occurrence: US)
  Receive Date: 20250122
  Receipt Date: 20250122
  Transmission Date: 20250409
  Serious: Yes (Other)
  Sender: AUROBINDO
  Company Number: US-MLMSERVICE-20201203-2610980-1

PATIENT
  Age: 38 Year
  Sex: Male

DRUGS (14)
  1. ARIPIPRAZOLE [Suspect]
     Active Substance: ARIPIPRAZOLE
     Indication: Tic
     Route: 065
  2. CLONAZEPAM [Suspect]
     Active Substance: CLONAZEPAM
     Indication: Tic
     Route: 065
  3. CLONIDINE [Suspect]
     Active Substance: CLONIDINE
     Indication: Tic
     Route: 065
  4. HALOPERIDOL [Suspect]
     Active Substance: HALOPERIDOL
     Indication: Tic
     Route: 065
  5. RISPERIDONE [Suspect]
     Active Substance: RISPERIDONE
     Indication: Tic
     Route: 065
  6. TOPIRAMATE [Suspect]
     Active Substance: TOPIRAMATE
     Indication: Tic
     Route: 065
  7. PIMOZIDE [Suspect]
     Active Substance: PIMOZIDE
     Indication: Tic
     Route: 065
  8. BENZTROPINE [Concomitant]
     Active Substance: BENZTROPINE
     Indication: Tic
     Route: 065
  9. PERGOLIDE [Concomitant]
     Active Substance: PERGOLIDE
     Indication: Tic
     Route: 065
  10. AMANTADINE [Concomitant]
     Active Substance: AMANTADINE
     Indication: Tic
     Dosage: 100 MILLIGRAM, 3 TIMES A DAY
     Route: 065
  11. ATORVASTATIN [Concomitant]
     Active Substance: ATORVASTATIN
     Indication: Tic
     Route: 065
  12. GUANFACINE [Concomitant]
     Active Substance: GUANFACINE
     Indication: Tic
     Route: 065
  13. OLANZAPINE [Concomitant]
     Active Substance: OLANZAPINE
     Indication: Tic
     Route: 065
  14. PAROXETINE [Concomitant]
     Active Substance: PAROXETINE
     Indication: Tic
     Route: 065

REACTIONS (8)
  - Dystonia [Unknown]
  - Peripheral swelling [Unknown]
  - Hypotension [Unknown]
  - Dry mouth [Unknown]
  - Aggression [Unknown]
  - Somnolence [Unknown]
  - Lethargy [Unknown]
  - Drug ineffective [Unknown]
